FAERS Safety Report 24447079 (Version 1)
Quarter: 2024Q4

REPORT INFORMATION
  Report Type: Spontaneous
  Country: IT (occurrence: IT)
  Receive Date: 20241016
  Receipt Date: 20241016
  Transmission Date: 20250115
  Serious: Yes (Hospitalization, Disabling, Other)
  Sender: PFIZER
  Company Number: None

PATIENT
  Age: 54 Year
  Sex: Male
  Weight: 54 kg

DRUGS (8)
  1. METHOTREXATE SODIUM [Suspect]
     Active Substance: METHOTREXATE SODIUM
     Indication: Burkitt^s lymphoma stage IV
     Dosage: UNK
     Route: 042
     Dates: start: 20240814, end: 20240815
  2. VINCRISTINE SULFATE [Suspect]
     Active Substance: VINCRISTINE SULFATE
     Indication: Burkitt^s lymphoma stage IV
     Dosage: 2 MG, SINGLE (1.500 MG/MQ)
     Route: 042
     Dates: start: 20240806, end: 20240806
  3. VINCRISTINE SULFATE [Suspect]
     Active Substance: VINCRISTINE SULFATE
     Dosage: 2 MG, SINGLE (1.500 MG/MQ)
     Route: 042
     Dates: start: 20240813, end: 20240813
  4. CYTARABINE [Suspect]
     Active Substance: CYTARABINE
     Indication: Burkitt^s lymphoma stage IV
     Dosage: 50 MG
     Route: 037
     Dates: start: 20240817, end: 20240817
  5. DOXORUBICIN HYDROCHLORIDE [Suspect]
     Active Substance: DOXORUBICIN HYDROCHLORIDE
     Indication: Burkitt^s lymphoma stage IV
     Dosage: 64 MG, SINGLE (DOXORUBICIN 40,000 MG/MQ )
     Route: 042
     Dates: start: 20240806, end: 20240806
  6. CYCLOPHOSPHAMIDE [Suspect]
     Active Substance: CYCLOPHOSPHAMIDE
     Indication: Burkitt^s lymphoma stage IV
     Dosage: 1280 MG, SINGLE (800,000 MG/MQ)
     Route: 042
     Dates: start: 20240806, end: 20240806
  7. CYCLOPHOSPHAMIDE [Suspect]
     Active Substance: CYCLOPHOSPHAMIDE
     Dosage: 320 MG, SINGLE (200,000 MG/MQ)
     Route: 042
     Dates: start: 20240807, end: 20240810
  8. FAMOTIDINE [Concomitant]
     Active Substance: FAMOTIDINE
     Dosage: 40 MG, DAILY
     Route: 048
     Dates: start: 202408

REACTIONS (11)
  - Encephalopathy [Recovered/Resolved with Sequelae]
  - Acute kidney injury [Recovered/Resolved with Sequelae]
  - Pulmonary oedema [Recovered/Resolved]
  - Hyperpyrexia [Recovered/Resolved]
  - Mucosal inflammation [Recovered/Resolved]
  - Abdominal pain [Recovered/Resolved]
  - Hypokinesia [Recovered/Resolved]
  - Intra-abdominal fluid collection [Recovered/Resolved]
  - Pleural effusion [Recovered/Resolved]
  - Diarrhoea [Recovered/Resolved]
  - Off label use [Unknown]

NARRATIVE: CASE EVENT DATE: 20240801
